FAERS Safety Report 26059783 (Version 2)
Quarter: 2025Q4

REPORT INFORMATION
  Report Type: Spontaneous
  Country: JP (occurrence: JP)
  Receive Date: 20251118
  Receipt Date: 20251124
  Transmission Date: 20260119
  Serious: No
  Sender: DAIICHI
  Company Number: JP-DSJP-DS-2025-177003-JP

PATIENT
  Age: 54 Year
  Sex: Female

DRUGS (4)
  1. ENHERTU [Suspect]
     Active Substance: FAM-TRASTUZUMAB DERUXTECAN-NXKI
     Indication: HER2 low breast cancer
     Dosage: 4.4 MG/KG, ONCE EVERY 3 WK
     Route: 041
     Dates: start: 20251111
  2. BEVACIZUMAB [Suspect]
     Active Substance: BEVACIZUMAB
     Indication: HER2 low breast cancer
     Dosage: UNK, 3 DOSES, 1 REST, 6 CYCLES
     Route: 065
     Dates: start: 20250325, end: 20251027
  3. PACLITAXEL [Suspect]
     Active Substance: PACLITAXEL
     Indication: HER2 low breast cancer
     Dosage: UNK, 3 DOSES, 1 REST, 6 CYCLES
     Route: 065
     Dates: start: 20250325, end: 20251027
  4. OLMESARTAN MEDOXOMIL [Concomitant]
     Active Substance: OLMESARTAN MEDOXOMIL
     Indication: Hypertension
     Dosage: 20 MG
     Route: 048
     Dates: start: 20251007

REACTIONS (5)
  - Nausea [Unknown]
  - Blood pressure increased [Unknown]
  - Oral herpes [Unknown]
  - Dry mouth [Unknown]
  - Underdose [Unknown]

NARRATIVE: CASE EVENT DATE: 20251101
